FAERS Safety Report 5487506-1 (Version None)
Quarter: 2007Q4

REPORT INFORMATION
  Report Type: 
  Country: None (occurrence: None)
  Receive Date: 20071016
  Receipt Date: 20071004
  Transmission Date: 20080405
  Serious: Yes (Other)
  Sender: FDA-Public Use
  Company Number: US-PFIZER INC-2007083980

PATIENT
  Age: 15 Year
  Sex: Male
  Weight: 58 kg

DRUGS (5)
  1. LYRICA [Suspect]
     Indication: CONVULSION
  2. PHENYTOIN [Suspect]
     Indication: CONVULSION
  3. ALL OTHER THERAPEUTIC PRODUCTS [Suspect]
  4. ALL OTHER THERAPEUTIC PRODUCTS [Suspect]
  5. ATIVAN [Concomitant]

REACTIONS (2)
  - CONVULSION [None]
  - DRUG PRESCRIBING ERROR [None]
